FAERS Safety Report 12973271 (Version 7)
Quarter: 2019Q3

REPORT INFORMATION
  Report Type: Spontaneous
  Country: JP (occurrence: JP)
  Receive Date: 20161124
  Receipt Date: 20190801
  Transmission Date: 20191004
  Serious: Yes (Life-Threatening, Hospitalization, Other)
  Sender: FDA-Public Use
  Company Number: JP-PFIZER INC-2016499908

PATIENT
  Age: 73 Year
  Sex: Male
  Weight: 59 kg

DRUGS (3)
  1. MEILAX [Suspect]
     Active Substance: ETHYL LOFLAZEPATE
     Indication: ANXIETY DISORDER
     Dosage: 1 MG, 1X/DAY
     Route: 048
     Dates: start: 20121024, end: 20161021
  2. LOXONIN [Concomitant]
     Active Substance: LOXOPROFEN SODIUM
     Indication: HEADACHE
     Dosage: UNK
     Route: 048
     Dates: start: 201610
  3. LIPITOR [Suspect]
     Active Substance: ATORVASTATIN CALCIUM
     Indication: DYSLIPIDAEMIA
     Dosage: 5 MG, 1X/DAY
     Route: 048
     Dates: start: 20121205, end: 20161021

REACTIONS (8)
  - Fall [Recovered/Resolved with Sequelae]
  - Rhabdomyolysis [Recovering/Resolving]
  - Hip fracture [Unknown]
  - Malaise [Recovered/Resolved]
  - Acute kidney injury [Recovering/Resolving]
  - Cardiac failure congestive [Unknown]
  - Pleural effusion [Unknown]
  - Contusion [Unknown]

NARRATIVE: CASE EVENT DATE: 20161019
